FAERS Safety Report 22658335 (Version 1)
Quarter: 2023Q2

REPORT INFORMATION
  Report Type: Other
  Country: FR (occurrence: None)
  Receive Date: 20230630
  Receipt Date: 20230630
  Transmission Date: 20230722
  Serious: Yes (Life-Threatening, Hospitalization, Other)
  Sender: FDA-Public Use
  Company Number: FR-Navinta LLC-000452

PATIENT
  Age: 3 Year

DRUGS (1)
  1. ROPIVACAINE [Suspect]
     Active Substance: ROPIVACAINE
     Indication: Femur fracture
     Dosage: 7.5 MG/ML SOLUTION RESULTING IN THE ADMINISTRATION OF 112.5 MG OF ROPIVACAINE
     Route: 037

REACTIONS (3)
  - Wrong dose [Recovered/Resolved]
  - Local anaesthetic systemic toxicity [Recovered/Resolved]
  - Seizure [Recovered/Resolved]
